FAERS Safety Report 18855762 (Version 1)
Quarter: 2021Q1

REPORT INFORMATION
  Report Type: Spontaneous
  Country: JP (occurrence: JP)
  Receive Date: 20210205
  Receipt Date: 20210205
  Transmission Date: 20210420
  Serious: Yes (Other)
  Sender: FDA-Public Use
  Company Number: JP-009507513-2102JPN001915

PATIENT
  Age: 76 Year
  Sex: Male

DRUGS (32)
  1. HACHIMI?JIO?GAN [Concomitant]
     Dosage: UNK
  2. CEPHADOL [Concomitant]
     Active Substance: DIPHENIDOL HYDROCHLORIDE
     Dosage: UNK
     Route: 048
  3. PAPAVERINE HYDROCHLORIDE. [Concomitant]
     Active Substance: PAPAVERINE HYDROCHLORIDE
     Route: 048
  4. DEPAS (ETIZOLAM) [Suspect]
     Active Substance: ETIZOLAM
     Indication: DIZZINESS
     Dosage: 1 MG, 1X/DAY
     Route: 048
  5. MAINTATE [Suspect]
     Active Substance: BISOPROLOL FUMARATE
     Dosage: 5 MG, 1X/DAY
     Route: 048
  6. ADETPHOS [Concomitant]
     Active Substance: ADENOSINE TRIPHOSPHATE
     Dosage: UNK
  7. RISPERDAL [Concomitant]
     Active Substance: RISPERIDONE
     Dosage: UNK
     Route: 048
  8. JANUVIA [Suspect]
     Active Substance: SITAGLIPTIN PHOSPHATE
     Dosage: UNK
     Route: 048
  9. DEPAS (ETIZOLAM) [Suspect]
     Active Substance: ETIZOLAM
     Dosage: 0.5 MG, 3X/DAY
     Route: 048
  10. AMLODIPINE BESYLATE. [Concomitant]
     Active Substance: AMLODIPINE BESYLATE
     Dosage: UNK
     Route: 048
  11. METHYCOBAL [Concomitant]
     Active Substance: METHYLCOBALAMIN
     Dosage: UNK
     Route: 048
  12. MAINTATE [Suspect]
     Active Substance: BISOPROLOL FUMARATE
     Indication: HYPERTENSION
     Dosage: 2.5 MG, 1X/DAY
     Route: 048
  13. SOLANAX [Concomitant]
     Active Substance: ALPRAZOLAM
     Dosage: UNK
     Route: 048
  14. LENDORMIN [Concomitant]
     Active Substance: BROTIZOLAM
     Dosage: UNK
     Route: 048
  15. PAXIL [Concomitant]
     Active Substance: PAROXETINE HYDROCHLORIDE
     Dosage: UNK
     Route: 048
  16. HALCION [Concomitant]
     Active Substance: TRIAZOLAM
     Dosage: UNK
  17. ADENOSINE TRIPHOSPHATE DISODIUM [Concomitant]
     Active Substance: ADENOSINE TRIPHOSPHATE DISODIUM
     Dosage: UNK
  18. ROSUVASTATIN CALCIUM. [Concomitant]
     Active Substance: ROSUVASTATIN CALCIUM
     Dosage: UNK
     Route: 048
  19. VASOLAN [Concomitant]
     Dosage: UNK
  20. XEPLION [Concomitant]
     Active Substance: PALIPERIDONE PALMITATE
     Route: 048
  21. MERISLON [Concomitant]
     Active Substance: BETAHISTINE MESILATE
     Dosage: UNK
     Route: 048
  22. XARELTO [Concomitant]
     Active Substance: RIVAROXABAN
     Dosage: UNK
     Route: 048
  23. DEPAS (ETIZOLAM) [Suspect]
     Active Substance: ETIZOLAM
     Indication: TINNITUS
     Dosage: UNK
     Route: 048
  24. CLOTIAZEPAM [Suspect]
     Active Substance: CLOTIAZEPAM
     Indication: DIZZINESS
     Dosage: UNK
     Route: 048
  25. MAINTATE [Suspect]
     Active Substance: BISOPROLOL FUMARATE
     Dosage: UNK
     Route: 048
  26. CERCINE [Concomitant]
     Active Substance: DIAZEPAM
     Dosage: UNK
     Route: 048
  27. BUFFERIN [Concomitant]
     Active Substance: ASPIRIN
     Dosage: UNK
  28. URIEF [Concomitant]
     Active Substance: SILODOSIN
     Dosage: UNK
     Route: 048
  29. SUNRYTHM [Concomitant]
     Active Substance: PILSICAINIDE HYDROCHLORIDE
     Dosage: UNK
     Route: 048
  30. WARFARIN [Concomitant]
     Active Substance: WARFARIN
     Dosage: UNK
     Route: 048
  31. CAMSHIA [Concomitant]
     Active Substance: AMLODIPINE BESYLATE\CANDESARTAN CILEXETIL
     Dosage: UNK
  32. UNISIA [Concomitant]
     Active Substance: AMLODIPINE BESYLATE\CANDESARTAN CILEXETIL
     Dosage: UNK

REACTIONS (20)
  - Tinnitus [Unknown]
  - Cerebral infarction [Unknown]
  - Cataract [Unknown]
  - Off label use [Unknown]
  - Palpitations [Unknown]
  - Somnolence [Unknown]
  - Drug resistance [Unknown]
  - Arrhythmia [Unknown]
  - Middle insomnia [Unknown]
  - Halo vision [Unknown]
  - Exophthalmos [Unknown]
  - Diplopia [Unknown]
  - Dependence [Unknown]
  - Therapeutic product effect incomplete [Unknown]
  - Heart rate increased [Unknown]
  - Dizziness [Unknown]
  - Product use in unapproved indication [Unknown]
  - Blood pressure increased [Unknown]
  - Aggression [Unknown]
  - Blood pressure decreased [Unknown]
